FAERS Safety Report 17275048 (Version 2)
Quarter: 2020Q1

REPORT INFORMATION
  Report Type: Report from Study
  Country: KR (occurrence: KR)
  Receive Date: 20200116
  Receipt Date: 20200128
  Transmission Date: 20200409
  Serious: Yes (Hospitalization)
  Sender: FDA-Public Use
  Company Number: KR-CELLTRION INC.-2020KR017602

PATIENT

DRUGS (19)
  1. TRUXIMA [Suspect]
     Active Substance: RITUXIMAB-ABBS
     Indication: RHEUMATOID ARTHRITIS
     Dosage: 1000 MG, 2 WEEK(S)
     Route: 042
     Dates: start: 20190503, end: 20190516
  2. SOLONDO [Concomitant]
     Active Substance: PREDNISOLONE
     Indication: RHEUMATOID ARTHRITIS
     Dosage: 7.5 MG, QD
     Route: 048
     Dates: start: 20190924, end: 20191010
  3. METHYSOL [Concomitant]
     Indication: RASH
     Dosage: 35 MG, QD
     Route: 042
     Dates: start: 20191030, end: 20191102
  4. METHYSOL [Concomitant]
     Dosage: 30 MG, QD
     Route: 042
     Dates: start: 20191030, end: 20191102
  5. ADALAT [Concomitant]
     Active Substance: NIFEDIPINE
     Indication: SJOGREN^S SYNDROME
     Dosage: 33 MG, QD
     Route: 048
     Dates: start: 20191019, end: 20191114
  6. DESOWEN [Concomitant]
     Active Substance: DESONIDE
     Indication: RASH
     Dosage: 1 BOTTLE, QD
     Route: 061
     Dates: start: 20191028, end: 20191114
  7. SOLONDO [Concomitant]
     Active Substance: PREDNISOLONE
     Dosage: 7.5 MG, QD
     Route: 048
     Dates: start: 20191029, end: 20191029
  8. SOLONDO [Concomitant]
     Active Substance: PREDNISOLONE
     Dosage: 5 MG, BID
     Route: 048
     Dates: start: 20191112, end: 20191116
  9. PANTOLOC [PANTOPRAZOLE] [Concomitant]
     Active Substance: PANTOPRAZOLE SODIUM
     Indication: PROPHYLAXIS
     Dosage: 20 MG, QD
     Route: 048
     Dates: start: 20180131
  10. SOLONDO [Concomitant]
     Active Substance: PREDNISOLONE
     Indication: RASH
     Dosage: 10 MG, QD
     Route: 048
     Dates: start: 20191011, end: 20191028
  11. ADIPAM [HYDROXYZINE HYDROCHLORIDE] [Concomitant]
     Active Substance: HYDROXYZINE HYDROCHLORIDE
     Indication: RASH
     Dosage: 10 MG, TID
     Route: 048
     Dates: start: 20191030, end: 20191114
  12. CELEBREX [Concomitant]
     Active Substance: CELECOXIB
     Indication: RHEUMATOID ARTHRITIS
     Dosage: 200 MG, BID
     Route: 048
     Dates: start: 20180517
  13. SOLONDO [Concomitant]
     Active Substance: PREDNISOLONE
     Dosage: 25 MG, QD
     Route: 048
     Dates: start: 20191106, end: 20191106
  14. SOLONDO [Concomitant]
     Active Substance: PREDNISOLONE
     Dosage: 10 MG, QD
     Route: 048
     Dates: start: 20191107, end: 20191111
  15. PRIMALAN [Concomitant]
     Active Substance: MEQUITAZINE
     Indication: RASH
     Dosage: 5 MG, BID
     Route: 048
     Dates: start: 20191029, end: 20191108
  16. FOLIC ACID. [Concomitant]
     Active Substance: FOLIC ACID
     Indication: PROPHYLAXIS
     Dosage: 1 MG, QD
     Route: 048
     Dates: start: 20190322
  17. METHYSOL [Concomitant]
     Dosage: 25 MG, QD
     Route: 042
     Dates: start: 20191105, end: 20191105
  18. HALOXIN [ALUMINIUM HYDROXIDE] [Concomitant]
     Indication: RHEUMATOID ARTHRITIS
     Dosage: 200 MG, BID
     Route: 048
     Dates: start: 20191007, end: 20191114
  19. ADIPAM [HYDROXYZINE HYDROCHLORIDE] [Concomitant]
     Active Substance: HYDROXYZINE HYDROCHLORIDE
     Dosage: 15MG, OTHER
     Route: 048
     Dates: start: 20191030, end: 20191107

REACTIONS (1)
  - Osteomyelitis [Recovered/Resolved]

NARRATIVE: CASE EVENT DATE: 20190801
